FAERS Safety Report 9274495 (Version 2)
Quarter: 2013Q2

REPORT INFORMATION
  Report Type: Spontaneous
  Country: JP (occurrence: JP)
  Receive Date: 20130507
  Receipt Date: 20130523
  Transmission Date: 20140414
  Serious: Yes (Death, Hospitalization)
  Sender: FDA-Public Use
  Company Number: JP-ROCHE-1208377

PATIENT
  Age: 83 Year
  Sex: Male
  Weight: 49 kg

DRUGS (5)
  1. AVASTIN [Suspect]
     Indication: LUNG ADENOCARCINOMA METASTATIC
     Route: 041
     Dates: start: 20130315, end: 20130315
  2. ALIMTA [Suspect]
     Indication: LUNG ADENOCARCINOMA METASTATIC
     Route: 041
     Dates: start: 20130315, end: 20130315
  3. CARBOPLATIN [Suspect]
     Indication: LUNG ADENOCARCINOMA METASTATIC
     Route: 041
     Dates: start: 20130315, end: 20130315
  4. GRANISETRON [Concomitant]
     Indication: PROPHYLAXIS
     Route: 041
     Dates: start: 20130315, end: 20130315
  5. PANVITAN [Concomitant]
     Indication: PROPHYLAXIS
     Route: 048
     Dates: start: 20130315, end: 20130315

REACTIONS (4)
  - Pulmonary haemorrhage [Fatal]
  - Respiratory failure [Fatal]
  - Disseminated intravascular coagulation [Not Recovered/Not Resolved]
  - Lip haemorrhage [Not Recovered/Not Resolved]
